FAERS Safety Report 4524183-8 (Version None)
Quarter: 2004Q4

REPORT INFORMATION
  Report Type: 
  Country: None (occurrence: None)
  Receive Date: 20041119
  Receipt Date: 20041014
  Transmission Date: 20050328
  Serious: No
  Sender: FDA-Public Use
  Company Number: PHEH2004US11081

PATIENT
  Age: 55 Year
  Sex: Female

DRUGS (2)
  1. ZELNORM [Suspect]
     Indication: IRRITABLE BOWEL SYNDROME
     Dosage: 6 MG, BID, ORAL
     Route: 048
     Dates: start: 20040601
  2. ORTHO-PREFEST (NORGESTIMATE) [Concomitant]

REACTIONS (5)
  - BACK PAIN [None]
  - CERVIX DISORDER [None]
  - GASTROINTESTINAL DISORDER [None]
  - NUCLEAR MAGNETIC RESONANCE IMAGING ABNORMAL [None]
  - UTERINE DISORDER [None]
